FAERS Safety Report 23017441 (Version 6)
Quarter: 2024Q4

REPORT INFORMATION
  Report Type: Report from Study
  Country: US (occurrence: US)
  Receive Date: 20231003
  Receipt Date: 20241003
  Transmission Date: 20250115
  Serious: Yes (Life-Threatening, Hospitalization, Other)
  Sender: NOVARTIS
  Company Number: US-002147023-NVSC2023US207312

PATIENT
  Age: 83 Year
  Sex: Male

DRUGS (3)
  1. ENTRESTO [Suspect]
     Active Substance: SACUBITRIL\VALSARTAN
     Indication: Product used for unknown indication
     Dosage: UNK
     Route: 065
  2. ENTRESTO [Suspect]
     Active Substance: SACUBITRIL\VALSARTAN
     Dosage: 1 DOSAGE FORM, BID (24/26 MG)
     Route: 065
     Dates: start: 20230919
  3. LOSARTAN [Suspect]
     Active Substance: LOSARTAN
     Indication: Product used for unknown indication
     Dosage: UNK
     Route: 065

REACTIONS (8)
  - Pulmonary embolism [Unknown]
  - Dyspnoea [Unknown]
  - COVID-19 [Recovering/Resolving]
  - Heart rate decreased [Unknown]
  - Malaise [Unknown]
  - Skin haemorrhage [Unknown]
  - Contraindicated product administered [Unknown]
  - Hypotension [Unknown]

NARRATIVE: CASE EVENT DATE: 20230920
